FAERS Safety Report 5307057-4 (Version None)
Quarter: 2007Q2

REPORT INFORMATION
  Report Type: 
  Country: None (occurrence: None)
  Receive Date: 20070420
  Receipt Date: 20070420
  Transmission Date: 20071010
  Serious: Yes (Hospitalization, Disabling)
  Sender: FDA-Public Use
  Company Number: None

PATIENT
  Sex: Male
  Weight: 72.5755 kg

DRUGS (1)
  1. PILOCARPINE [Suspect]
     Indication: MACULAR DEGENERATION
     Dosage: 1 DROP   3 TIMES DAILY  OPHTHALMIC
     Route: 047
     Dates: start: 20070303, end: 20070329

REACTIONS (3)
  - BLINDNESS UNILATERAL [None]
  - RETINAL DETACHMENT [None]
  - VITREOUS DISORDER [None]
